FAERS Safety Report 8271584-0 (Version None)
Quarter: 2012Q2

REPORT INFORMATION
  Report Type: 
  Country: None (occurrence: None)
  Receive Date: 20120410
  Receipt Date: 20120405
  Transmission Date: 20120825
  Serious: Yes (Hospitalization)
  Sender: FDA-Public Use
  Company Number: US-GLAXOSMITHKLINE-A0865993A

PATIENT
  Age: 73 Year
  Sex: Female
  Weight: 107.3 kg

DRUGS (8)
  1. AVANDAMET [Suspect]
     Indication: DIABETES MELLITUS
     Route: 048
  2. THYROID MEDICATION [Concomitant]
  3. COZAAR [Concomitant]
  4. VERAPAMIL [Concomitant]
  5. AVANDIA [Suspect]
     Indication: DIABETES MELLITUS
     Dosage: 4MG PER DAY
     Dates: start: 20000101, end: 20070101
  6. GLUCOVANCE [Concomitant]
  7. CYMBALTA [Concomitant]
  8. CELEBREX [Concomitant]

REACTIONS (2)
  - MYOCARDIAL INFARCTION [None]
  - ATRIOVENTRICULAR BLOCK [None]
